FAERS Safety Report 6077488-6 (Version None)
Quarter: 2009Q1

REPORT INFORMATION
  Report Type: 
  Country: None (occurrence: None)
  Receive Date: 20090213
  Receipt Date: 20081230
  Transmission Date: 20090719
  Serious: No
  Sender: FDA-Public Use
  Company Number: A0761910A

PATIENT
  Age: 52 Year
  Sex: Female

DRUGS (9)
  1. TREXIMET [Suspect]
     Indication: MIGRAINE
     Dosage: 85MG AS REQUIRED
     Route: 048
     Dates: start: 20080801
  2. IMITREX [Suspect]
     Indication: MIGRAINE
     Dosage: 20MG AS REQUIRED
     Route: 045
     Dates: start: 20060101
  3. IMITREX [Suspect]
     Dosage: 100MG AS REQUIRED
     Route: 048
     Dates: start: 20060101
  4. IMITREX [Suspect]
     Dosage: 10MG AS REQUIRED
     Route: 058
     Dates: start: 20060101
  5. VERAPAMIL [Concomitant]
  6. DEPAKOTE [Concomitant]
  7. NORTRIPTYLINE HCL [Concomitant]
  8. FIORICET [Concomitant]
  9. IMITREX [Concomitant]

REACTIONS (4)
  - DRUG INEFFECTIVE [None]
  - NERVOUS SYSTEM DISORDER [None]
  - PARAESTHESIA [None]
  - THERAPEUTIC RESPONSE DECREASED [None]
